FAERS Safety Report 9174184 (Version 1)
Quarter: 2013Q1

REPORT INFORMATION
  Report Type: Spontaneous
  Country: GB (occurrence: None)
  Receive Date: 20130315
  Receipt Date: 20130315
  Transmission Date: 20140127
  Serious: Yes (Other)
  Sender: FDA-Public Use
  Company Number: 2013-03960

PATIENT
  Sex: Female

DRUGS (2)
  1. SERTRALINE HYDROCHLORIDE [Suspect]
     Indication: DEPRESSION
     Dosage: 0.5 DF, DAILY, ORAL
     Route: 048
  2. LOFEPRAMINE (LOFEPRAMINE) [Concomitant]

REACTIONS (7)
  - Myalgia [None]
  - Back pain [None]
  - Musculoskeletal stiffness [None]
  - Musculoskeletal pain [None]
  - Cognitive disorder [None]
  - Pain in extremity [None]
  - Discomfort [None]
